FAERS Safety Report 4618314-9 (Version None)
Quarter: 2005Q1

REPORT INFORMATION
  Report Type: 
  Country: None (occurrence: None)
  Receive Date: 20050323
  Receipt Date: 20050311
  Transmission Date: 20050727
  Serious: Yes (Hospitalization)
  Sender: FDA-Public Use
  Company Number: 2005JP000535

PATIENT
  Age: 8 Year
  Sex: Male

DRUGS (4)
  1. TACROLIMUS CAPSULES(TACROLIMUS CAPSULES) CAPSULE [Suspect]
     Indication: RENAL TRANSPLANT
     Dosage: 1.50 MG, BID, ORAL
     Route: 048
     Dates: start: 20040118, end: 20041117
  2. TACROLIMUS CAPSULES(TACROLIMUS CAPSULES) CAPSULE [Suspect]
     Indication: RENAL TRANSPLANT
     Dosage: 1.50 MG, BID, ORAL
     Route: 048
     Dates: start: 20041118
  3. CELLCEPT [Suspect]
     Indication: RENAL TRANSPLANT
     Dosage: 600.00 MG, ORAL
     Route: 048
     Dates: end: 20050102
  4. POLLAKISU (OXYBUTYNIN HYDROCHLORIDE) TABLET [Concomitant]

REACTIONS (1)
  - ENTEROCOLITIS [None]
